FAERS Safety Report 15503601 (Version 1)
Quarter: 2018Q4

REPORT INFORMATION
  Report Type: Spontaneous
  Country: US (occurrence: US)
  Receive Date: 20181009
  Receipt Date: 20181009
  Transmission Date: 20190205
  Serious: Yes (Death)
  Sender: FDA-Public Use
  Company Number: None

PATIENT
  Age: 87 Year
  Sex: Male

DRUGS (8)
  1. LUPRON [Suspect]
     Active Substance: LEUPROLIDE ACETATE
     Indication: PROSTATE CANCER
     Dosage: ?          OTHER FREQUENCY:EVERY 4 MONTHS;?
     Route: 030
     Dates: start: 20050426, end: 20180924
  2. CYTRA-2 [Concomitant]
     Active Substance: CITRIC ACID MONOHYDRATE\TRISODIUM CITRATE DIHYDRATE
  3. POT CHLORIDE 8MEQ [Concomitant]
  4. LUPRON [Suspect]
     Active Substance: LEUPROLIDE ACETATE
     Indication: NEUTROPENIA
     Dosage: ?          OTHER FREQUENCY:EVERY 4 MONTHS;?
     Route: 030
     Dates: start: 20050426, end: 20180924
  5. CALCIUM/D 600-400 [Concomitant]
  6. COUMADIN [Concomitant]
     Active Substance: WARFARIN SODIUM
  7. PREDNISONE 5MG [Concomitant]
     Active Substance: PREDNISONE
  8. ALLOPURINOL 300MG [Concomitant]
     Active Substance: ALLOPURINOL

REACTIONS (1)
  - Prostate cancer metastatic [None]

NARRATIVE: CASE EVENT DATE: 20180924
